FAERS Safety Report 6315346-X (Version None)
Quarter: 2009Q3

REPORT INFORMATION
  Report Type: 
  Country: None (occurrence: None)
  Receive Date: 20090819
  Receipt Date: 20090806
  Transmission Date: 20100115
  Serious: Yes (Hospitalization)
  Sender: FDA-Public Use
  Company Number: FR-PFIZER INC-2009256053

PATIENT
  Age: 33 Year

DRUGS (4)
  1. LYRICA [Suspect]
     Indication: PAIN
     Dosage: UNK
     Route: 048
     Dates: start: 20090210, end: 20090512
  2. LAROXYL [Suspect]
     Dosage: UNK
     Route: 048
     Dates: start: 20090210, end: 20090512
  3. ZOLOFT [Concomitant]
  4. MORPHINE [Concomitant]
     Indication: PAIN
     Dosage: UNK
     Dates: start: 20090210

REACTIONS (1)
  - ABORTION SPONTANEOUS [None]
